FAERS Safety Report 9698901 (Version 2)
Quarter: 2014Q1

REPORT INFORMATION
  Report Type: Spontaneous
  Country: BR (occurrence: BR)
  Receive Date: 20131120
  Receipt Date: 20140102
  Transmission Date: 20141002
  Serious: Yes (Disabling)
  Sender: FDA-Public Use
  Company Number: BR-ABBVIE-13P-020-1171203-00

PATIENT
  Age: 62 Year
  Sex: Male

DRUGS (7)
  1. DEPAKOTE [Suspect]
     Indication: EPILEPSY
     Dosage: DAILY DOSE: 2 TABLET, IN THE MORNING/ AT NIGHT
     Route: 048
     Dates: start: 2009
  2. DEPAKOTE [Suspect]
     Indication: PROPHYLAXIS
  3. RISPERIDONE [Concomitant]
     Indication: PRODUCT USED FOR UNKNOWN INDICATION
  4. ZOLPIDEM [Concomitant]
     Indication: PRODUCT USED FOR UNKNOWN INDICATION
  5. ALOIS [Concomitant]
     Indication: PRODUCT USED FOR UNKNOWN INDICATION
  6. UNKNOWN MEDICATION [Concomitant]
     Indication: EUPHORIC MOOD
  7. UNKNOWN MEDICATION [Concomitant]
     Indication: ANXIETY

REACTIONS (7)
  - Abasia [Unknown]
  - Aphasia [Unknown]
  - Weight decreased [Unknown]
  - Faecal incontinence [Unknown]
  - Dysphagia [Unknown]
  - Urinary incontinence [Unknown]
  - Crying [Unknown]
